FAERS Safety Report 19315774 (Version 1)
Quarter: 2021Q2

REPORT INFORMATION
  Report Type: Spontaneous
  Country: CO (occurrence: CO)
  Receive Date: 20210527
  Receipt Date: 20210527
  Transmission Date: 20210717
  Serious: Yes (Other)
  Sender: FDA-Public Use
  Company Number: CO-PFIZER INC-2021556086

PATIENT
  Age: 48 Year
  Sex: Female

DRUGS (1)
  1. PROVERA [Suspect]
     Active Substance: MEDROXYPROGESTERONE ACETATE
     Indication: MENSTRUATION IRREGULAR

REACTIONS (6)
  - Asthenia [Unknown]
  - Migraine [Unknown]
  - Hyperacusis [Unknown]
  - Paraesthesia [Unknown]
  - Photophobia [Unknown]
  - Fatigue [Unknown]
